FAERS Safety Report 24340729 (Version 2)
Quarter: 2025Q1

REPORT INFORMATION
  Report Type: Spontaneous
  Country: JP (occurrence: JP)
  Receive Date: 20240919
  Receipt Date: 20250214
  Transmission Date: 20250409
  Serious: Yes (Other)
  Sender: FERRING
  Company Number: JP-ferring-EVA202401374FERRINGPH

PATIENT

DRUGS (1)
  1. DESMOPRESSIN ACETATE [Suspect]
     Active Substance: DESMOPRESSIN ACETATE
     Indication: Diabetes insipidus
     Dosage: 60 UG, DAILY
     Route: 048

REACTIONS (2)
  - Altered state of consciousness [Recovered/Resolved]
  - Wrong product administered [Recovered/Resolved]
